FAERS Safety Report 5135370-2 (Version None)
Quarter: 2006Q4

REPORT INFORMATION
  Report Type: 
  Country: None (occurrence: None)
  Receive Date: 20061024
  Receipt Date: 20061024
  Transmission Date: 20070319
  Serious: Yes (Other)
  Sender: FDA-Public Use
  Company Number: None

PATIENT
  Age: 43 Year
  Sex: Male

DRUGS (3)
  1. GAMUNEX [Suspect]
     Dosage: 35G IV INFUSION A MONTH
     Route: 042
  2. CLARITIN [Concomitant]
  3. PSEUDOEPHEDRINE [Concomitant]

REACTIONS (2)
  - DRUG DOSE OMISSION [None]
  - RASH GENERALISED [None]
